FAERS Safety Report 11573501 (Version 2)
Quarter: 2015Q4

REPORT INFORMATION
  Report Type: Spontaneous
  Country: DE (occurrence: EE)
  Receive Date: 20150929
  Receipt Date: 20151002
  Transmission Date: 20160304
  Serious: Yes (Hospitalization, Other)
  Sender: FDA-Public Use
  Company Number: DE-ACTELION-A-NJ2015-124736

PATIENT
  Age: 73 Year
  Sex: Female

DRUGS (3)
  1. AMBRISENTAN [Concomitant]
     Active Substance: AMBRISENTAN
  2. WARFARIN [Interacting]
     Active Substance: WARFARIN
     Indication: PULMONARY ARTERIAL HYPERTENSION
     Dosage: UNK
     Route: 065
     Dates: start: 20141212
  3. VENTAVIS [Suspect]
     Active Substance: ILOPROST
     Indication: PULMONARY ARTERIAL HYPERTENSION
     Dosage: 5 UNK, UNK
     Route: 055
     Dates: start: 20150526, end: 20150916

REACTIONS (4)
  - Labelled drug-drug interaction medication error [Recovering/Resolving]
  - Disease progression [Unknown]
  - Subdural haematoma [Recovering/Resolving]
  - Lung neoplasm malignant [Unknown]

NARRATIVE: CASE EVENT DATE: 20150916
